FAERS Safety Report 9992042 (Version 2)
Quarter: 2014Q3

REPORT INFORMATION
  Report Type: Spontaneous
  Country: US (occurrence: US)
  Receive Date: 20140310
  Receipt Date: 20140819
  Transmission Date: 20150326
  Serious: Yes (Hospitalization)
  Sender: FDA-Public Use
  Company Number: US-BAYER-2014-035463

PATIENT
  Age: 26 Year
  Sex: Female
  Weight: 52.15 kg

DRUGS (2)
  1. YASMIN [Suspect]
     Active Substance: DROSPIRENONE\ETHINYL ESTRADIOL
     Indication: ACNE
     Dosage: UNK
     Dates: start: 2002, end: 2004
  2. YASMIN [Suspect]
     Active Substance: DROSPIRENONE\ETHINYL ESTRADIOL
     Indication: PREMENSTRUAL SYNDROME

REACTIONS (7)
  - General physical health deterioration [None]
  - Emotional distress [None]
  - Deep vein thrombosis [None]
  - Injury [None]
  - Anxiety [None]
  - Pain [None]
  - Abdominal pain [None]

NARRATIVE: CASE EVENT DATE: 200403
